FAERS Safety Report 9509030 (Version 1)
Quarter: 2013Q1

REPORT INFORMATION
  Report Type: Spontaneous
  Country: US (occurrence: None)
  Receive Date: 20130305
  Receipt Date: 20130305
  Transmission Date: 20140127
  Serious: Yes (Other)
  Sender: FDA-Public Use
  Company Number: 163-21880-12022987

PATIENT
  Age: 72 Year
  Sex: Male
  Weight: 53 kg

DRUGS (7)
  1. REVLIMID (LENALIDOMIDE) (25 MILLIGRAM, CAPSULES) [Suspect]
     Indication: PLASMA CELL MYELOMA
     Dosage: 1 IN 1 D
     Route: 048
     Dates: start: 201103
  2. ASPIRIN (ACETYLSALICYLIC ACID) (325 MILLIGRAM, UNKNOWN) [Concomitant]
  3. DEXAMETHASONE (DEXAMETHASONE) [Concomitant]
  4. LIDODERM (LIDOCAINE) (5 PERCENT, POULTICE OR PATCH) [Concomitant]
  5. PAMIDRONATE (PAMIDRONATE DISODIUM) [Concomitant]
  6. SYNTHROID (LEVOTHYROXINE SODIUM) [Concomitant]
  7. VICODIN (VICODIN) [Concomitant]

REACTIONS (1)
  - Deep vein thrombosis [None]
